FAERS Safety Report 13668907 (Version 1)
Quarter: 2017Q2

REPORT INFORMATION
  Report Type: Spontaneous
  Country: BE (occurrence: BE)
  Receive Date: 20170620
  Receipt Date: 20170620
  Transmission Date: 20170830
  Serious: Yes (Other)
  Sender: FDA-Public Use
  Company Number: BE-GLAXOSMITHKLINE-BE2017GSK094285

PATIENT
  Age: 18 Year
  Sex: Female

DRUGS (1)
  1. ATOVAQUONE + PROGUANIL HYDROCHLORIDE [Suspect]
     Active Substance: ATOVAQUONE\PROGUANIL HYDROCHLORIDE
     Indication: PROPHYLAXIS

REACTIONS (6)
  - Asthenia [Recovered/Resolved]
  - Muscular weakness [Recovered/Resolved]
  - Rhabdomyolysis [Recovered/Resolved]
  - Blood creatine phosphokinase increased [Recovered/Resolved]
  - Pain in extremity [Recovered/Resolved]
  - Myalgia [Recovered/Resolved]
